FAERS Safety Report 11872691 (Version 2)
Quarter: 2016Q2

REPORT INFORMATION
  Report Type: Spontaneous
  Country: JP (occurrence: JP)
  Receive Date: 20151228
  Receipt Date: 20160627
  Transmission Date: 20160815
  Serious: Yes (Hospitalization)
  Sender: FDA-Public Use
  Company Number: JP-BRISTOL-MYERS SQUIBB COMPANY-BMS-2015-088591

PATIENT
  Age: 77 Year
  Sex: Male

DRUGS (25)
  1. BAYASPIRIN [Concomitant]
     Active Substance: ASPIRIN
     Indication: CARDIAC FAILURE
     Route: 048
  2. CIBENOL [Concomitant]
     Active Substance: CIFENLINE
     Indication: CARDIAC FAILURE
     Dosage: 100 MG, UNK
     Route: 048
  3. SIGMART [Concomitant]
     Active Substance: NICORANDIL
     Indication: CARDIAC FAILURE
     Dosage: 15 MG, UNK
     Route: 048
  4. LEVEMIR [Concomitant]
     Active Substance: INSULIN DETEMIR
     Indication: TYPE 2 DIABETES MELLITUS
     Dosage: UNK
     Route: 058
     Dates: start: 20150717
  5. NEXIUM [Concomitant]
     Active Substance: ESOMEPRAZOLE MAGNESIUM
     Indication: PEMPHIGOID
     Dosage: 20 MG, UNK
     Route: 048
  6. BETAMETHASONE. [Concomitant]
     Active Substance: BETAMETHASONE
     Dosage: 0.5 MG, UNK
     Route: 048
     Dates: start: 20151218, end: 20151230
  7. BETAMETHASONE. [Concomitant]
     Active Substance: BETAMETHASONE
     Dosage: UNK
     Route: 048
     Dates: start: 20151205
  8. BETAMETHASONE. [Concomitant]
     Active Substance: BETAMETHASONE
     Dosage: 3 MG, UNK
     Route: 048
     Dates: start: 20150917
  9. BETAMETHASONE. [Concomitant]
     Active Substance: BETAMETHASONE
     Dosage: 1.5 MG, UNK
     Route: 048
     Dates: start: 20151114
  10. FUROSEMIDE. [Concomitant]
     Active Substance: FUROSEMIDE
     Indication: CARDIAC FAILURE
     Dosage: 20 MG, UNK
     Route: 048
  11. BETAMETHASONE. [Concomitant]
     Active Substance: BETAMETHASONE
     Dosage: 1.25 MG, UNK
     Route: 048
     Dates: start: 20151121
  12. BETAMETHASONE. [Concomitant]
     Active Substance: BETAMETHASONE
     Dosage: 0.75 MG, UNK
     Route: 048
     Dates: start: 20151218, end: 20151230
  13. MAGLAX [Concomitant]
     Active Substance: MAGNESIUM OXIDE
     Indication: CONSTIPATION
     Dosage: 990 MG, UNK
     Route: 048
  14. BETAMETHASONE. [Concomitant]
     Active Substance: BETAMETHASONE
     Dosage: 2.75 MG, UNK
     Route: 048
     Dates: start: 20151005
  15. METGLUCO [Suspect]
     Active Substance: METFORMIN HYDROCHLORIDE
     Indication: PRODUCT USED FOR UNKNOWN INDICATION
     Dosage: UNK
     Route: 048
     Dates: end: 20150908
  16. TENELIGLIPTIN HYDROBROMIDE [Suspect]
     Active Substance: TENELIGLIPTIN
     Indication: TYPE 2 DIABETES MELLITUS
     Dosage: 20 MG, UNK
     Route: 048
     Dates: end: 20150908
  17. PANTOSIN [Concomitant]
     Active Substance: PANTETHINE
     Indication: CONSTIPATION
     Dosage: 300 MG, UNK
     Route: 048
  18. BETAMETHASONE. [Concomitant]
     Active Substance: BETAMETHASONE
     Indication: PEMPHIGOID
     Dosage: 4 MG, UNK
     Route: 048
     Dates: end: 20150908
  19. BETAMETHASONE. [Concomitant]
     Active Substance: BETAMETHASONE
     Dosage: 3.5 MG, UNK
     Route: 048
     Dates: start: 20150909
  20. BETAMETHASONE. [Concomitant]
     Active Substance: BETAMETHASONE
     Dosage: 2.5 MG, UNK
     Route: 048
     Dates: start: 20151018
  21. BETAMETHASONE. [Concomitant]
     Active Substance: BETAMETHASONE
     Dosage: 2.25 MG, UNK
     Route: 048
     Dates: start: 20151024
  22. BETAMETHASONE. [Concomitant]
     Active Substance: BETAMETHASONE
     Dosage: 2 MG, UNK
     Route: 048
     Dates: start: 20151031
  23. BETAMETHASONE. [Concomitant]
     Active Substance: BETAMETHASONE
     Dosage: 1.75 MG, UNK
     Route: 048
     Dates: start: 20151107
  24. BETAMETHASONE. [Concomitant]
     Active Substance: BETAMETHASONE
     Dosage: 1 MG, UNK
     Route: 048
     Dates: start: 20151205
  25. NOVORAPID [Concomitant]
     Active Substance: INSULIN ASPART
     Indication: TYPE 2 DIABETES MELLITUS
     Dosage: UNK
     Route: 058
     Dates: start: 20150710

REACTIONS (1)
  - Pemphigoid [Recovered/Resolved]

NARRATIVE: CASE EVENT DATE: 201505
